FAERS Safety Report 13517582 (Version 3)
Quarter: 2017Q4

REPORT INFORMATION
  Report Type: Spontaneous
  Country: FR (occurrence: FR)
  Receive Date: 20170505
  Receipt Date: 20171102
  Transmission Date: 20180320
  Serious: Yes (Death, Other)
  Sender: FDA-Public Use
  Company Number: FR-CLINIGEN GROUP PLC/ CLINIGEN HEALTHCARE LTD-FR-CLGN-17-00159

PATIENT
  Age: 59 Year
  Sex: Male

DRUGS (30)
  1. FOSCAVIR [Suspect]
     Active Substance: FOSCARNET SODIUM
     Route: 042
     Dates: start: 20170215, end: 20170215
  2. NICOBION [Concomitant]
     Active Substance: NIACINAMIDE
     Indication: PRODUCT USED FOR UNKNOWN INDICATION
  3. FOSCAVIR [Suspect]
     Active Substance: FOSCARNET SODIUM
     Route: 042
     Dates: start: 20170221, end: 20170221
  4. FOSCAVIR [Suspect]
     Active Substance: FOSCARNET SODIUM
     Route: 042
     Dates: end: 20170404
  5. AZYTER COLLYRE [Concomitant]
     Indication: PRODUCT USED FOR UNKNOWN INDICATION
  6. FOSCAVIR [Suspect]
     Active Substance: FOSCARNET SODIUM
     Route: 042
     Dates: start: 20170227, end: 20170227
  7. FOSCAVIR [Suspect]
     Active Substance: FOSCARNET SODIUM
     Route: 042
     Dates: start: 20170316, end: 20170316
  8. CIFLOX [Concomitant]
     Active Substance: CIPROFLOXACIN
     Indication: PRODUCT USED FOR UNKNOWN INDICATION
  9. CERNEVIT [Concomitant]
     Active Substance: VITAMINS
     Indication: PRODUCT USED FOR UNKNOWN INDICATION
  10. FOSCAVIR [Suspect]
     Active Substance: FOSCARNET SODIUM
     Route: 042
     Dates: start: 20170310, end: 20170310
  11. ACEBUTOLOL [Concomitant]
     Active Substance: ACEBUTOLOL
     Indication: PRODUCT USED FOR UNKNOWN INDICATION
  12. SODIUM BICARBONATE. [Concomitant]
     Active Substance: SODIUM BICARBONATE
     Indication: PRODUCT USED FOR UNKNOWN INDICATION
  13. MEROPENEM. [Concomitant]
     Active Substance: MEROPENEM
     Indication: PRODUCT USED FOR UNKNOWN INDICATION
  14. SPECIAFOLDINE [Concomitant]
     Active Substance: FOLIC ACID
     Indication: PRODUCT USED FOR UNKNOWN INDICATION
  15. DOLIPRANE [Concomitant]
     Active Substance: ACETAMINOPHEN
     Indication: PRODUCT USED FOR UNKNOWN INDICATION
  16. LEVETIRACETAM. [Concomitant]
     Active Substance: LEVETIRACETAM
     Indication: PRODUCT USED FOR UNKNOWN INDICATION
  17. FOSCAVIR [Suspect]
     Active Substance: FOSCARNET SODIUM
     Route: 042
     Dates: start: 20170213, end: 20170213
  18. PRINCI B [Concomitant]
     Active Substance: CYANOCOBALAMIN\PYRIDOXINE HYDROCHLORIDE\THIAMINE
     Indication: PRODUCT USED FOR UNKNOWN INDICATION
  19. FOSCAVIR [Suspect]
     Active Substance: FOSCARNET SODIUM
     Indication: CYTOMEGALOVIRUS VIRAEMIA
     Route: 042
     Dates: start: 20170128, end: 20170208
  20. FOSCAVIR [Suspect]
     Active Substance: FOSCARNET SODIUM
     Route: 042
     Dates: start: 20170303, end: 20170303
  21. FOSCAVIR [Suspect]
     Active Substance: FOSCARNET SODIUM
     Route: 042
     Dates: start: 20170318, end: 20170318
  22. ARAVA [Concomitant]
     Active Substance: LEFLUNOMIDE
     Indication: PRODUCT USED FOR UNKNOWN INDICATION
     Route: 048
     Dates: start: 20150827, end: 20160106
  23. LERCANIDIPINE [Concomitant]
     Active Substance: LERCANIDIPINE
     Indication: PRODUCT USED FOR UNKNOWN INDICATION
  24. DIFFU K [Concomitant]
     Active Substance: POTASSIUM CHLORIDE
     Indication: PRODUCT USED FOR UNKNOWN INDICATION
  25. INEXIUM [Concomitant]
     Active Substance: ESOMEPRAZOLE
     Indication: PRODUCT USED FOR UNKNOWN INDICATION
  26. FUROSEMIDE. [Concomitant]
     Active Substance: FUROSEMIDE
     Indication: PRODUCT USED FOR UNKNOWN INDICATION
  27. FOSCAVIR [Suspect]
     Active Substance: FOSCARNET SODIUM
     Route: 042
     Dates: start: 20170224, end: 20170224
  28. ARAVA [Concomitant]
     Active Substance: LEFLUNOMIDE
     Route: 048
     Dates: start: 20160107
  29. RAPAMUNE [Concomitant]
     Active Substance: SIROLIMUS
     Indication: PRODUCT USED FOR UNKNOWN INDICATION
     Route: 048
     Dates: start: 20150727
  30. ORACILLINE [Concomitant]
     Active Substance: PENICILLIN V
     Indication: PRODUCT USED FOR UNKNOWN INDICATION

REACTIONS (4)
  - Monoplegia [Recovered/Resolved]
  - Off label use [Recovered/Resolved]
  - Hot flush [Recovered/Resolved]
  - Hypotension [Recovered/Resolved]

NARRATIVE: CASE EVENT DATE: 20170128
